FAERS Safety Report 9549360 (Version 1)
Quarter: 2013Q3

REPORT INFORMATION
  Report Type: Spontaneous
  Country: US (occurrence: US)
  Receive Date: 20130924
  Receipt Date: 20130924
  Transmission Date: 20140515
  Serious: Yes (Other)
  Sender: FDA-Public Use
  Company Number: US-CELGENEUS-163-21880-13092428

PATIENT
  Age: 56 Year
  Sex: Female

DRUGS (1)
  1. REVLIMID [Suspect]
     Indication: NEOPLASM
     Dosage: 15 MILLIGRAM
     Route: 048
     Dates: start: 201303

REACTIONS (2)
  - Lower limb fracture [Unknown]
  - Pain in extremity [Unknown]
